FAERS Safety Report 11529815 (Version 2)
Quarter: 2015Q4

REPORT INFORMATION
  Report Type: Spontaneous
  Country: JP (occurrence: JP)
  Receive Date: 20150921
  Receipt Date: 20151005
  Transmission Date: 20160304
  Serious: Yes (Life-Threatening, Hospitalization, Other)
  Sender: FDA-Public Use
  Company Number: JP-GLAXOSMITHKLINE-JP2015JPN122183

PATIENT
  Age: 23 Year
  Sex: Female
  Weight: 59 kg

DRUGS (3)
  1. DEPAKENE [Concomitant]
     Active Substance: VALPROIC ACID
  2. LAMICTAL [Suspect]
     Active Substance: LAMOTRIGINE
     Indication: EPILEPSY
     Dosage: 25 MG, BID
     Route: 048
     Dates: start: 20150107, end: 20150203
  3. EXCEGRAN [Concomitant]
     Active Substance: ZONISAMIDE
     Dosage: 100 MG, QD
     Dates: end: 20150203

REACTIONS (9)
  - Skin oedema [Unknown]
  - Generalised erythema [Unknown]
  - Stevens-Johnson syndrome [Recovered/Resolved]
  - Skin necrosis [Unknown]
  - Rash [Unknown]
  - Drug eruption [Recovered/Resolved]
  - Skin degenerative disorder [Unknown]
  - Toxic skin eruption [Unknown]
  - Perivascular dermatitis [Unknown]

NARRATIVE: CASE EVENT DATE: 201501
